FAERS Safety Report 9040621 (Version 1)
Quarter: 2013Q1

REPORT INFORMATION
  Report Type: Report from Study
  Country: US (occurrence: US)
  Receive Date: 20130129
  Receipt Date: 20130129
  Transmission Date: 20140127
  Serious: No
  Sender: FDA-Public Use
  Company Number: US-ABBOTT-12P-163-0889634-00

PATIENT
  Age: 62 Year
  Sex: Female

DRUGS (11)
  1. HUMIRA 40 MG/0.8 ML PEN [Suspect]
     Indication: CROHN^S DISEASE
     Dates: start: 20111129
  2. NEXIUM [Concomitant]
     Indication: GASTRIC DISORDER
  3. CRESTOR [Concomitant]
     Indication: BLOOD CHOLESTEROL
  4. MOBIC [Concomitant]
     Indication: CARDIAC DISORDER
  5. COREG [Concomitant]
     Indication: CARDIAC DISORDER
  6. METFORMIN [Concomitant]
     Indication: DIABETES MELLITUS
  7. AMARYL [Concomitant]
     Indication: DIABETES MELLITUS
  8. AVANDIA [Concomitant]
     Indication: DIABETES MELLITUS
  9. QUINAPRIL [Concomitant]
     Indication: CARDIAC DISORDER
  10. ESTRADIOL [Concomitant]
     Indication: HORMONE REPLACEMENT THERAPY
  11. ASPIRIN [Concomitant]
     Indication: CARDIAC DISORDER
     Dosage: LOW DOSE ONCE A DAY

REACTIONS (2)
  - Weight increased [Recovering/Resolving]
  - Fluid retention [Unknown]
